FAERS Safety Report 22637643 (Version 2)
Quarter: 2023Q2

REPORT INFORMATION
  Report Type: Spontaneous
  Country: DE (occurrence: DE)
  Receive Date: 20230626
  Receipt Date: 20230630
  Transmission Date: 20230722
  Serious: Yes (Other)
  Sender: FDA-Public Use
  Company Number: DE-JAZZ PHARMACEUTICALS-2023-DE-013423

PATIENT
  Age: 2 Year

DRUGS (1)
  1. CANNABIDIOL [Suspect]
     Active Substance: CANNABIDIOL
     Indication: Tuberous sclerosis complex
     Dosage: 10 MG/KG/D
     Route: 048

REACTIONS (3)
  - Seizure [Unknown]
  - Diarrhoea [Unknown]
  - Appetite disorder [Unknown]
